FAERS Safety Report 18012662 (Version 2)
Quarter: 2020Q3

REPORT INFORMATION
  Report Type: Spontaneous
  Country: IT (occurrence: IT)
  Receive Date: 20200713
  Receipt Date: 20200720
  Transmission Date: 20201103
  Serious: Yes (Other)
  Sender: FDA-Public Use
  Company Number: IT-MYLANLABS-2020M1063246

PATIENT
  Age: 82 Year
  Sex: Female

DRUGS (12)
  1. LEVETIRACETAM. [Suspect]
     Active Substance: LEVETIRACETAM
     Indication: PARTIAL SEIZURES
     Dosage: 1000 MILLIGRAM, QD
     Route: 048
     Dates: start: 20200519
  2. MINIAS [Suspect]
     Active Substance: LORMETAZEPAM
     Indication: ANXIOLYTIC THERAPY
     Dosage: 10 GTT DROPS, QD
     Route: 048
     Dates: end: 20200630
  3. DOXAZOSIN MESILATE [Concomitant]
     Active Substance: DOXAZOSIN MESYLATE
     Indication: HYPERTENSION
     Dosage: UNK
     Route: 048
  4. TARGIN [Concomitant]
     Active Substance: NALOXONE HYDROCHLORIDE\OXYCODONE HYDROCHLORIDE
     Dosage: 30 MILLIGRAM
     Route: 048
  5. CLODRON [Concomitant]
     Indication: SENILE OSTEOPOROSIS
     Dosage: UNK
     Route: 030
  6. SINTROM [Concomitant]
     Active Substance: ACENOCOUMAROL
     Indication: VASCULITIS
     Dosage: UNK
     Route: 048
  7. CARDIOASPIRIN [Concomitant]
     Active Substance: ASPIRIN
     Indication: THROMBOSIS PROPHYLAXIS
     Dosage: 100 MILLIGRAM, QD
     Route: 048
  8. PANTOPRAZOLE [Concomitant]
     Active Substance: PANTOPRAZOLE
     Indication: PROPHYLAXIS AGAINST GASTROINTESTINAL ULCER
     Dosage: UNK
     Route: 048
  9. EZETIMIBE/SIMVASTATIN [Concomitant]
     Active Substance: EZETIMIBE\SIMVASTATIN
     Indication: HYPERCHOLESTEROLAEMIA
     Dosage: UNK
     Route: 048
  10. OLMESARTAN MEDOXOMIL. [Concomitant]
     Active Substance: OLMESARTAN MEDOXOMIL
     Indication: HYPERTENSION
     Dosage: UNK
     Route: 048
  11. PARACETAMOL [Concomitant]
     Active Substance: ACETAMINOPHEN
     Indication: PAIN
     Dosage: UNK
     Route: 048
  12. TARGIN [Concomitant]
     Active Substance: NALOXONE HYDROCHLORIDE\OXYCODONE HYDROCHLORIDE
     Indication: PAIN
     Dosage: 30 MILLIGRAM, QD
     Route: 048

REACTIONS (3)
  - Bradyphrenia [Recovering/Resolving]
  - Somnolence [Recovering/Resolving]
  - Bradykinesia [Recovering/Resolving]

NARRATIVE: CASE EVENT DATE: 20200630
